FAERS Safety Report 4752183-1 (Version None)
Quarter: 2005Q3

REPORT INFORMATION
  Report Type: 
  Country: None (occurrence: None)
  Receive Date: 20050824
  Receipt Date: 20050824
  Transmission Date: 20060218
  Serious: Yes (Hospitalization, Other)
  Sender: FDA-Public Use
  Company Number: None

PATIENT
  Sex: Male
  Weight: 75 kg

DRUGS (4)
  1. 5-FU [Suspect]
     Indication: GASTROOESOPHAGEAL CANCER
     Dosage: SEE IMAGE
     Dates: start: 20050814
  2. LEUCOVORIN [Suspect]
     Dosage: SEE IMAGE
     Dates: start: 20050627
  3. 5-FU [Suspect]
     Dosage: SEE IMAGE
     Dates: start: 20050627
  4. RADIATION [Suspect]
     Dosage: SEE IMAGE
     Dates: start: 20050627

REACTIONS (4)
  - ABDOMINAL PAIN [None]
  - ABDOMINAL PAIN UPPER [None]
  - NAUSEA [None]
  - VOMITING [None]
